FAERS Safety Report 5752427-3 (Version None)
Quarter: 2008Q2

REPORT INFORMATION
  Report Type: 
  Country: None (occurrence: None)
  Receive Date: 20080529
  Receipt Date: 20080527
  Transmission Date: 20081010
  Serious: Yes (Other)
  Sender: FDA-Public Use
  Company Number: B0520609A

PATIENT
  Age: 36 Year
  Sex: Male

DRUGS (5)
  1. FLUTICASONE [Suspect]
     Indication: ASTHMA
     Route: 055
     Dates: start: 20071201, end: 20080404
  2. RITONAVIR [Suspect]
     Indication: HIV INFECTION
     Route: 048
     Dates: start: 20030101
  3. SAQUINAVIR [Concomitant]
     Indication: HIV INFECTION
     Dosage: 2G PER DAY
     Route: 048
     Dates: start: 20030101
  4. TRUVADA [Concomitant]
     Indication: HIV INFECTION
     Route: 048
     Dates: start: 20030101
  5. SEPTRIN [Concomitant]
     Indication: PROPHYLAXIS
     Dates: start: 20030101

REACTIONS (4)
  - AGGRESSION [None]
  - DRUG INTERACTION [None]
  - PSYCHOTIC DISORDER [None]
  - SUICIDE ATTEMPT [None]
